FAERS Safety Report 13522208 (Version 2)
Quarter: 2017Q3

REPORT INFORMATION
  Report Type: Spontaneous
  Country: FR (occurrence: FR)
  Receive Date: 20170508
  Receipt Date: 20170908
  Transmission Date: 20171127
  Serious: Yes (Death, Life-Threatening, Other)
  Sender: FDA-Public Use
  Company Number: FR-GLAXOSMITHKLINE-FR2017GSK065389

PATIENT
  Age: 58 Year
  Sex: Male

DRUGS (7)
  1. ELIQUIS [Concomitant]
     Active Substance: APIXABAN
     Indication: PRODUCT USED FOR UNKNOWN INDICATION
     Dosage: UNK
  2. ESMERON [Suspect]
     Active Substance: ROCURONIUM BROMIDE
     Indication: GENERAL ANAESTHESIA
     Dosage: UNK
     Route: 042
     Dates: start: 20170425, end: 20170425
  3. FEIBA [Suspect]
     Active Substance: ANTI-INHIBITOR COAGULANT COMPLEX
     Indication: HAEMORRHAGE PROPHYLAXIS
     Dosage: UNK
     Route: 042
     Dates: start: 20170425, end: 20170425
  4. FEIBA [Suspect]
     Active Substance: ANTI-INHIBITOR COAGULANT COMPLEX
     Dosage: UNK
     Route: 042
     Dates: start: 20170425, end: 20170425
  5. ETOMIDATE LIPURO [Suspect]
     Active Substance: ETOMIDATE
     Indication: GENERAL ANAESTHESIA
     Dosage: UNK
     Route: 042
     Dates: start: 20170425, end: 20170425
  6. SEVOFLURANE. [Suspect]
     Active Substance: SEVOFLURANE
     Indication: GENERAL ANAESTHESIA
     Dosage: UNK
     Route: 055
     Dates: start: 20170425, end: 20170425
  7. ZINNAT [Suspect]
     Active Substance: CEFUROXIME AXETIL
     Indication: ANTIBIOTIC PROPHYLAXIS
     Dosage: UNK
     Route: 042
     Dates: start: 20170425, end: 20170425

REACTIONS (2)
  - Cardio-respiratory arrest [Unknown]
  - Multiple organ dysfunction syndrome [Fatal]

NARRATIVE: CASE EVENT DATE: 20170425
